FAERS Safety Report 15440721 (Version 1)
Quarter: 2018Q3

REPORT INFORMATION
  Report Type: Report from Study
  Country: TN (occurrence: TN)
  Receive Date: 20180928
  Receipt Date: 20180928
  Transmission Date: 20181010
  Serious: Yes (Death)
  Sender: FDA-Public Use
  Company Number: TN-SAKK-2018SA268176AA

PATIENT
  Age: 62 Year
  Sex: Female

DRUGS (5)
  1. ATOR [Concomitant]
     Active Substance: ATORVASTATIN CALCIUM
     Dosage: UNK
  2. NEBILET [Concomitant]
     Active Substance: NEBIVOLOL
     Dosage: UNK
  3. CORVASAL [MOLSIDOMINE] [Concomitant]
     Dosage: UNK
  4. CLOPIDOGREL BISULFATE. [Suspect]
     Active Substance: CLOPIDOGREL BISULFATE
     Dosage: 75 MG, QD
     Route: 048
     Dates: start: 20170926, end: 20180326
  5. ASPIRINE [Concomitant]
     Active Substance: ASPIRIN
     Dosage: UNK

REACTIONS (3)
  - Fatigue [Unknown]
  - Cardiac arrest [Fatal]
  - Discomfort [Unknown]

NARRATIVE: CASE EVENT DATE: 20180326
